FAERS Safety Report 15802211 (Version 6)
Quarter: 2019Q4

REPORT INFORMATION
  Report Type: Report from Study
  Country: US (occurrence: US)
  Receive Date: 20190109
  Receipt Date: 20191204
  Transmission Date: 20200122
  Serious: Yes (Hospitalization)
  Sender: FDA-Public Use
  Company Number: PHEH2019US000733

PATIENT
  Sex: Male

DRUGS (1)
  1. ENTRESTO [Suspect]
     Active Substance: SACUBITRIL\VALSARTAN
     Indication: PRODUCT USED FOR UNKNOWN INDICATION
     Dosage: UNK UNK, BID
     Route: 048

REACTIONS (9)
  - Dyspnoea [Unknown]
  - Diaphragmatic paralysis [Unknown]
  - Respiratory paralysis [Unknown]
  - Hypotension [Unknown]
  - Fluid retention [Unknown]
  - Dizziness [Unknown]
  - Pericardial effusion [Unknown]
  - Eating disorder [Unknown]
  - Movement disorder [Unknown]
